FAERS Safety Report 8371589-5 (Version None)
Quarter: 2012Q2

REPORT INFORMATION
  Report Type: 
  Country: None (occurrence: None)
  Receive Date: 20120518
  Receipt Date: 20120514
  Transmission Date: 20120825
  Serious: Yes (Death)
  Sender: FDA-Public Use
  Company Number: US-CELGENEUS-163-21880-12052010

PATIENT
  Sex: Male
  Weight: 69.3 kg

DRUGS (5)
  1. PLAVIX [Concomitant]
     Dosage: 75 MILLIGRAM
     Route: 065
  2. LOVAZA [Concomitant]
     Route: 065
  3. REVLIMID [Suspect]
     Indication: LYMPHOMA
     Dosage: 25 MILLIGRAM
     Route: 048
     Dates: start: 20110715
  4. PREDNISONE [Concomitant]
     Dosage: 10 MILLIGRAM
     Route: 065
  5. ASPIRIN USA [Concomitant]
     Dosage: 81 MILLIGRAM
     Route: 065

REACTIONS (1)
  - DEATH [None]
